FAERS Safety Report 7465574-5 (Version None)
Quarter: 2011Q2

REPORT INFORMATION
  Report Type: 
  Country: None (occurrence: None)
  Receive Date: 20110509
  Receipt Date: 20110502
  Transmission Date: 20111010
  Serious: Yes (Death)
  Sender: FDA-Public Use
  Company Number: US-ROCHE-775344

PATIENT
  Age: 63 Year
  Sex: Male

DRUGS (2)
  1. AVASTIN [Suspect]
     Dosage: 30 -90 MINS ON DAYS 1-15, LAST DOSE: 12 JAN 2011 (CYCLE 3 DAY 15)
     Route: 042
     Dates: start: 20101103
  2. NEXAVAR [Suspect]
     Dosage: DAYS 1-5, 8-12,15-19 AND 22-26, LAST DOSE: 21 JAN 2011 (CYCLE 3 DAY  24)
     Route: 048
     Dates: start: 20101103

REACTIONS (1)
  - DEATH [None]
